FAERS Safety Report 24762286 (Version 1)
Quarter: 2024Q4

REPORT INFORMATION
  Report Type: Spontaneous
  Country: FR (occurrence: FR)
  Receive Date: 20241221
  Receipt Date: 20241221
  Transmission Date: 20250114
  Serious: Yes (Other)
  Sender: TEVA
  Company Number: None

PATIENT
  Age: 84 Year
  Sex: Female

DRUGS (6)
  1. FESOTERODINE [Suspect]
     Active Substance: FESOTERODINE
     Indication: Medication error
     Dosage: 1 TABLET OF 4 MG
     Route: 048
     Dates: start: 20241014, end: 20241014
  2. MIANSERIN [Suspect]
     Active Substance: MIANSERIN
     Indication: Medication error
     Dosage: MIANSERINE HYDROCHLORIDE 1 TABLET OF 30 MG
     Route: 048
     Dates: start: 20241014, end: 20241014
  3. ALPRAZOLAM [Concomitant]
     Active Substance: ALPRAZOLAM
     Indication: Depression
     Dosage: 1 TABLET OF 0.25 MG
     Route: 048
     Dates: start: 20241014, end: 20241014
  4. PLAVIX [Suspect]
     Active Substance: CLOPIDOGREL BISULFATE
     Indication: Medication error
     Dosage: 1 TABLET
     Route: 048
     Dates: start: 20241014, end: 20241014
  5. ATORVASTATIN [Suspect]
     Active Substance: ATORVASTATIN
     Indication: Medication error
     Dosage: 1 TABLET OF 80 MG
     Route: 048
     Dates: start: 20241014, end: 20241014
  6. ASPIRIN [Suspect]
     Active Substance: ASPIRIN
     Indication: Medication error
     Dosage: 1 TABLET
     Route: 048
     Dates: start: 20241014, end: 20241014

REACTIONS (3)
  - Hypertension [Recovered/Resolved]
  - Medication error [Recovered/Resolved]
  - Cognitive disorder [Recovered/Resolved]

NARRATIVE: CASE EVENT DATE: 20241014
